APPROVED DRUG PRODUCT: HYDROCODONE
Active Ingredient: HYDROCODONE BITARTRATE; IBUPROFEN
Strength: 5MG;200MG
Dosage Form/Route: TABLET;ORAL
Application: A077723 | Product #003
Applicant: STRIDES PHARMA GLOBAL PTE LTD
Approved: Nov 6, 2006 | RLD: No | RS: No | Type: DISCN